FAERS Safety Report 5248643-X (Version None)
Quarter: 2007Q1

REPORT INFORMATION
  Report Type: 
  Country: None (occurrence: None)
  Receive Date: 20070226
  Receipt Date: 20070226
  Transmission Date: 20070707
  Serious: Yes (Life-Threatening, Hospitalization)
  Sender: FDA-Public Use
  Company Number: None

PATIENT
  Sex: Female
  Weight: 63.5036 kg

DRUGS (1)
  1. MAXITROL [Suspect]
     Indication: SUPERFICIAL INJURY OF EYE
     Dosage: 1 DROP OPHTHALMIC
     Route: 047
     Dates: start: 20070222, end: 20070222

REACTIONS (5)
  - ANAPHYLACTIC REACTION [None]
  - DRUG INEFFECTIVE [None]
  - EYE SWELLING [None]
  - OCULAR DISCOMFORT [None]
  - OCULAR HYPERAEMIA [None]
